FAERS Safety Report 9714920 (Version 2)
Quarter: 2013Q4

REPORT INFORMATION
  Report Type: Spontaneous
  Country: LB (occurrence: None)
  Receive Date: 20131125
  Receipt Date: 20131129
  Transmission Date: 20140711
  Serious: Yes (Other)
  Sender: FDA-Public Use
  Company Number: SYM-2013-13060

PATIENT
  Age: 44 Year
  Sex: Female

DRUGS (13)
  1. 5-FLUOROURACIL [Suspect]
     Indication: COLORECTAL CANCER METASTATIC
     Route: 040
     Dates: start: 20131004, end: 20131004
  2. IRINOTECAN [Suspect]
     Indication: COLORECTAL CANCER METASTATIC
     Route: 041
     Dates: start: 20131004, end: 20131004
  3. LEUCOVORIN [Suspect]
     Indication: COLORECTAL CANCER METASTATIC
     Route: 041
     Dates: start: 20131004, end: 20131004
  4. AFLIBERCEPT [Suspect]
     Indication: COLORECTAL CANCER METASTATIC
     Route: 041
     Dates: start: 20131003, end: 20131003
  5. CALCIUM CHANNEL BLOCKERS (CALCIUM CHANNEL BLOCKERS) [Concomitant]
  6. GASTRIMUT (OMEPRAZOLE) (OMEPRAZOLE) [Concomitant]
  7. ZOFRAN (ONDANSETRON HYDROCHLORIDE) (ONSANSETRON HYDROCHLORIDE) [Concomitant]
  8. SOLUMEDROL (METHYLPREDNISOLONE SODIUM SUCCINATE) (METHLYPREDNISOLONE SUCCINATE) [Concomitant]
  9. LIPANTHYL (FENOFIBRATE)(FENOFIBRATE) [Concomitant]
  10. DIOVOL (DIOVAL /00018101/) (MAGNESIUM HYDROXIDE, DIMETICONE, ALUMINUM HYDROXIDE) [Concomitant]
  11. ANGIOTENSIN I I ANTAGONISTS (ANIOTENSIN I I ANTAGONISTS, PLAIN) [Concomitant]
  12. KYTRIL(GRANSETRON HYDROCHLORIDE) (GRANISETRON HYDROSETRON HYDROCHLORIDE) [Concomitant]
  13. ATROPINE (ATROPINE) (ATROPINE) [Concomitant]

REACTIONS (1)
  - White blood cell count decreased [None]
